FAERS Safety Report 17016261 (Version 3)
Quarter: 2019Q4

REPORT INFORMATION
  Report Type: Spontaneous
  Country: US (occurrence: US)
  Receive Date: 20191111
  Receipt Date: 20191125
  Transmission Date: 20200122
  Serious: No
  Sender: FDA-Public Use
  Company Number: US-PFIZER INC-2018447513

PATIENT
  Age: 63 Year
  Sex: Male
  Weight: 124.7 kg

DRUGS (3)
  1. VIAGRA [Suspect]
     Active Substance: SILDENAFIL CITRATE
     Indication: SEXUAL DYSFUNCTION
     Dosage: 25 MG TO 100 MG, AS NEEDED (TAKE 1/4 TO 1 TAB AS NEEDED APPROXIMATELY 1 HOUR BEFORE SEXUAL ACTIVITY)
  2. VIAGRA [Suspect]
     Active Substance: SILDENAFIL CITRATE
     Dosage: 50 MG TO 100 MG, AS NEEDED
     Route: 048
  3. VIAGRA [Suspect]
     Active Substance: SILDENAFIL CITRATE
     Dosage: 100 MG, UNK
     Route: 048

REACTIONS (4)
  - Cough [Unknown]
  - Aphonia [Unknown]
  - Musculoskeletal discomfort [Unknown]
  - Nasopharyngitis [Not Recovered/Not Resolved]

NARRATIVE: CASE EVENT DATE: 20191104
